FAERS Safety Report 9927361 (Version 1)
Quarter: 2014Q1

REPORT INFORMATION
  Report Type: Spontaneous
  Country: IN (occurrence: IN)
  Receive Date: 20140226
  Receipt Date: 20140226
  Transmission Date: 20141002
  Serious: Yes (Disabling, Other)
  Sender: FDA-Public Use
  Company Number: IN-009507513-1402IND011399

PATIENT
  Age: 34 Year
  Sex: Female

DRUGS (1)
  1. JANUMET [Suspect]
     Indication: DIABETES MELLITUS
     Dosage: STRENGTH 50/500 MG, DOSE UNKNOWN, BID
     Route: 048

REACTIONS (1)
  - VIIth nerve paralysis [Recovered/Resolved]
